FAERS Safety Report 6195076-8 (Version None)
Quarter: 2009Q2

REPORT INFORMATION
  Report Type: 
  Country: None (occurrence: None)
  Receive Date: 20090519
  Receipt Date: 20090513
  Transmission Date: 20091009
  Serious: No
  Sender: FDA-Public Use
  Company Number: US-B.I. PHARMACEUTICALS,INC./RIDGEFIELD-2009-BP-04622BP

PATIENT
  Age: 47 Year
  Sex: Male

DRUGS (3)
  1. FLOMAX [Suspect]
     Indication: PROSTATOMEGALY
     Dosage: .4MG
     Route: 048
     Dates: start: 20070602, end: 20090406
  2. ALLEGRA [Concomitant]
     Indication: MULTIPLE ALLERGIES
     Dosage: 180MG
     Route: 048
     Dates: start: 20010101
  3. ZOLOFT [Concomitant]
     Indication: DEPRESSION
     Dosage: 150MG
     Route: 048
     Dates: start: 20010101

REACTIONS (5)
  - BLADDER SPASM [None]
  - DISCOMFORT [None]
  - DRUG INEFFECTIVE [None]
  - POLLAKIURIA [None]
  - SOMNOLENCE [None]
